FAERS Safety Report 17299875 (Version 1)
Quarter: 2020Q1

REPORT INFORMATION
  Report Type: Spontaneous
  Country: US (occurrence: US)
  Receive Date: 20200121
  Receipt Date: 20200121
  Transmission Date: 20200409
  Serious: Yes (Other)
  Sender: FDA-Public Use
  Company Number: None

PATIENT
  Age: 71 Year
  Sex: Male
  Weight: 90.45 kg

DRUGS (8)
  1. FENTANYL. [Concomitant]
     Active Substance: FENTANYL
     Dates: start: 20191230, end: 20191230
  2. SUGAMMEDEX [Concomitant]
     Dates: start: 20191230, end: 20191230
  3. DEXAMETHASONE. [Concomitant]
     Active Substance: DEXAMETHASONE
     Dates: start: 20191230, end: 20191230
  4. GLYCOPYRROLATE. [Concomitant]
     Active Substance: GLYCOPYRROLATE
     Dates: start: 20191230, end: 20191230
  5. PROPOFOL. [Concomitant]
     Active Substance: PROPOFOL
     Dates: start: 20191230, end: 20191230
  6. ROCURONIUM [Concomitant]
     Active Substance: ROCURONIUM BROMIDE
     Dates: start: 20191230, end: 20191230
  7. LIDOCAINE/EPINEPHRINE INTRANASAL INJECTION [Suspect]
     Active Substance: EPINEPHRINE\LIDOCAINE HYDROCHLORIDE
     Indication: NASAL SEPTUM DEVIATION
     Dates: start: 20191230, end: 20191230
  8. EPHEDRINE. [Concomitant]
     Active Substance: EPHEDRINE
     Dates: start: 20191230, end: 20191230

REACTIONS (1)
  - Bradycardia [None]

NARRATIVE: CASE EVENT DATE: 20191230
